FAERS Safety Report 16852278 (Version 6)
Quarter: 2019Q4

REPORT INFORMATION
  Report Type: Spontaneous
  Country: US (occurrence: US)
  Receive Date: 20190925
  Receipt Date: 20191120
  Transmission Date: 20200122
  Serious: Yes (Hospitalization)
  Sender: FDA-Public Use
  Company Number: US-ACTELION-A-US2019-194916

PATIENT
  Sex: Female
  Weight: 127.89 kg

DRUGS (4)
  1. VELETRI [Suspect]
     Active Substance: EPOPROSTENOL
     Indication: PULMONARY ARTERIAL HYPERTENSION
     Dosage: 5.6 NG/KG, PER MIN
     Route: 042
  2. VELETRI [Suspect]
     Active Substance: EPOPROSTENOL
     Dosage: 9.6 NG/KG, PER MIN
     Route: 042
  3. VELETRI [Suspect]
     Active Substance: EPOPROSTENOL
     Dosage: 11.5 NG/KG, PER MIN
     Route: 042
  4. OPSUMIT [Suspect]
     Active Substance: MACITENTAN
     Indication: PULMONARY ARTERIAL HYPERTENSION
     Route: 048

REACTIONS (18)
  - Erythema [Unknown]
  - Dyspnoea [Unknown]
  - Catheter management [Recovered/Resolved]
  - Anaemia [Unknown]
  - Catheter site erythema [Unknown]
  - Flushing [Unknown]
  - Swelling [Unknown]
  - Device dislocation [Recovered/Resolved]
  - Catheter site rash [Unknown]
  - Dermatitis contact [Unknown]
  - Headache [Unknown]
  - Peripheral swelling [Unknown]
  - Adverse event [Unknown]
  - Pain in jaw [Unknown]
  - Hypotension [Unknown]
  - Device issue [Recovered/Resolved]
  - Device leakage [Unknown]
  - Catheter site haemorrhage [Unknown]
